FAERS Safety Report 6957379-6 (Version None)
Quarter: 2010Q3

REPORT INFORMATION
  Report Type: 
  Country: None (occurrence: None)
  Receive Date: 20100831
  Receipt Date: 20100819
  Transmission Date: 20110219
  Serious: Yes (Death)
  Sender: FDA-Public Use
  Company Number: US-GENZYME-CLOF-1001144

PATIENT

DRUGS (4)
  1. CLOLAR [Suspect]
     Indication: ACUTE LEUKAEMIA
     Dosage: UNK UNK, QDX5
     Route: 042
  2. TOPOTECAN [Suspect]
     Indication: ACUTE LEUKAEMIA
     Dosage: UNK UNK, UNK
     Route: 065
  3. THIOTEPA [Suspect]
     Indication: ACUTE LEUKAEMIA
     Dosage: UNK UNK, UNK
     Route: 065
  4. VINORELBINE [Suspect]
     Indication: ACUTE LEUKAEMIA
     Dosage: UNK UNK, UNK
     Route: 065

REACTIONS (1)
  - BONE MARROW FAILURE [None]
